FAERS Safety Report 9562269 (Version 1)
Quarter: 2013Q3

REPORT INFORMATION
  Report Type: Spontaneous
  Country: US (occurrence: US)
  Receive Date: 20130927
  Receipt Date: 20130927
  Transmission Date: 20140515
  Serious: No
  Sender: FDA-Public Use
  Company Number: US-GLAXOSMITHKLINE-A1037686A

PATIENT
  Age: 61 Year
  Sex: Male

DRUGS (6)
  1. MEKINIST [Suspect]
     Indication: METASTATIC MALIGNANT MELANOMA
     Dosage: 2MG PER DAY
     Route: 048
     Dates: start: 20130802
  2. TAFINLAR [Suspect]
     Indication: METASTATIC MALIGNANT MELANOMA
     Dosage: 150MG TWICE PER DAY
     Route: 048
     Dates: start: 20130802
  3. UNKNOWN MEDICATION [Concomitant]
  4. GABAPENTIN [Concomitant]
  5. TRAMADOL [Concomitant]
  6. ZANTAC [Concomitant]

REACTIONS (3)
  - Rash [Not Recovered/Not Resolved]
  - Abdominal pain [Unknown]
  - Off label use [Unknown]
